FAERS Safety Report 23626286 (Version 2)
Quarter: 2024Q2

REPORT INFORMATION
  Report Type: Other
  Country: JP (occurrence: JP)
  Receive Date: 20240313
  Receipt Date: 20240405
  Transmission Date: 20240716
  Serious: Yes (Other)
  Sender: FDA-Public Use
  Company Number: JP-CHUGAI-2024007528AA

PATIENT
  Age: 77 Year

DRUGS (2)
  1. TECENTRIQ [Suspect]
     Active Substance: ATEZOLIZUMAB
     Indication: Hepatic cancer
     Dosage: 1200 MILLIGRAM
     Route: 065
  2. AVASTIN [Suspect]
     Active Substance: BEVACIZUMAB
     Indication: Hepatic cancer
     Dosage: 1000 MILLIGRAM
     Route: 065

REACTIONS (1)
  - Tumour pseudoprogression [Recovered/Resolved]
